FAERS Safety Report 4619184-5 (Version None)
Quarter: 2005Q2

REPORT INFORMATION
  Report Type: 
  Country: None (occurrence: None)
  Receive Date: 20050321
  Receipt Date: 20040825
  Transmission Date: 20051028
  Serious: Yes (Hospitalization)
  Sender: FDA-Public Use
  Company Number: 2004-08-1547

PATIENT
  Age: 65 Year
  Sex: Female

DRUGS (1)
  1. PEG-INTRON [Suspect]

REACTIONS (1)
  - CELLULITIS [None]
